FAERS Safety Report 4601898-4 (Version None)
Quarter: 2005Q1

REPORT INFORMATION
  Report Type: 
  Country: None (occurrence: None)
  Receive Date: 20050215
  Receipt Date: 20050105
  Transmission Date: 20050727
  Serious: Yes (Other)
  Sender: FDA-Public Use
  Company Number: 391802

PATIENT
  Age: 58 Year
  Sex: Female
  Weight: 59 kg

DRUGS (4)
  1. PEGASYS [Suspect]
     Indication: HEPATITIS C VIRUS
     Dosage: 90 MCG 1 PER WEEK SUBCUTANEOUS
     Route: 058
     Dates: start: 20041015
  2. COPEGUS [Suspect]
     Indication: HEPATITIS C VIRUS
     Dosage: 800 MG DAILY ORAL
     Route: 048
     Dates: start: 20041015
  3. THYROID TAB [Concomitant]
  4. INSULIN NPH (INSULIN (SUSPENSION), ISOPHANE) [Concomitant]

REACTIONS (6)
  - CONDITION AGGRAVATED [None]
  - DIABETES MELLITUS [None]
  - HAEMOGLOBIN DECREASED [None]
  - HYPOTHYROIDISM [None]
  - IDIOPATHIC THROMBOCYTOPENIC PURPURA [None]
  - WHITE BLOOD CELL COUNT DECREASED [None]
